FAERS Safety Report 9699354 (Version 2)
Quarter: 2014Q1

REPORT INFORMATION
  Report Type: Spontaneous
  Country: DE (occurrence: GB)
  Receive Date: 20131120
  Receipt Date: 20140217
  Transmission Date: 20141002
  Serious: Yes (Other)
  Sender: FDA-Public Use
  Company Number: ALCN2013GB005830

PATIENT
  Age: 83 Year
  Sex: Female

DRUGS (4)
  1. MAXIDEX [Suspect]
     Indication: UVEITIS
     Dosage: UNK, QH
     Route: 047
  2. PREDNISOLONE [Suspect]
     Indication: UVEITIS
     Dosage: 10 MG, QD
     Route: 048
     Dates: start: 20121112, end: 201301
  3. PREDNISOLONE [Concomitant]
     Route: 048
  4. PREDNISOLONE [Concomitant]
     Route: 048

REACTIONS (6)
  - Mental impairment [Not Recovered/Not Resolved]
  - Memory impairment [Not Recovered/Not Resolved]
  - Abulia [Not Recovered/Not Resolved]
  - Confusional state [Not Recovered/Not Resolved]
  - Depressed mood [Not Recovered/Not Resolved]
  - Anxiety [Unknown]
